FAERS Safety Report 8920488 (Version 1)
Quarter: 2012Q4

REPORT INFORMATION
  Report Type: 
  Country: IT (occurrence: IT)
  Receive Date: 20121121
  Receipt Date: 20121121
  Transmission Date: 20130627
  Serious: Yes (Hospitalization)
  Sender: FDA-Public Use
  Company Number: IT-ROCHE-1157210

PATIENT
  Age: 70 Year
  Sex: Female

DRUGS (3)
  1. ROCEFIN [Suspect]
     Indication: PRODUCT USED FOR UNKNOWN INDICATION
     Route: 030
     Dates: start: 20121025, end: 20121025
  2. SPIRIVA [Concomitant]
     Route: 055
  3. MEDROL [Concomitant]
     Route: 048

REACTIONS (1)
  - Dyspnoea [Unknown]
